FAERS Safety Report 19083119 (Version 2)
Quarter: 2021Q3

REPORT INFORMATION
  Report Type: Other
  Country: PK (occurrence: PK)
  Receive Date: 20210401
  Receipt Date: 20210722
  Transmission Date: 20211014
  Serious: Yes (Other)
  Sender: FDA-Public Use
  Company Number: PK-ROCHE-2798951

PATIENT
  Age: 49 Year

DRUGS (1)
  1. BEVACIZUMAB. [Suspect]
     Active Substance: BEVACIZUMAB
     Indication: RETINAL VASCULAR DISORDER
     Route: 050

REACTIONS (2)
  - Off label use [Unknown]
  - Endophthalmitis [Recovered/Resolved]
